FAERS Safety Report 20182553 (Version 5)
Quarter: 2022Q2

REPORT INFORMATION
  Report Type: Report from Study
  Country: ES (occurrence: ES)
  Receive Date: 20211214
  Receipt Date: 20220613
  Transmission Date: 20220721
  Serious: Yes (Hospitalization)
  Sender: FDA-Public Use
  Company Number: ES-GILEAD-2021-0559717

PATIENT
  Age: 71 Year
  Sex: Male

DRUGS (11)
  1. SACITUZUMAB GOVITECAN [Suspect]
     Active Substance: SACITUZUMAB GOVITECAN
     Indication: Non-small cell lung cancer metastatic
     Dosage: 820 MG
     Route: 042
     Dates: start: 20211105, end: 20211112
  2. ATEZOLIZUMAB [Suspect]
     Active Substance: ATEZOLIZUMAB
     Indication: Non-small cell lung cancer metastatic
     Dosage: 1200 MG, Q3WK
     Route: 041
     Dates: start: 20211105, end: 20211105
  3. SARS-COV-2 VACCINE [Concomitant]
     Dosage: UNK
     Dates: start: 20211125
  4. ACETAMINOPHEN [Concomitant]
     Active Substance: ACETAMINOPHEN
     Indication: Tumour pain
     Dosage: 1000 MG
     Route: 042
     Dates: start: 20211105
  5. ACETAMINOPHEN [Concomitant]
     Active Substance: ACETAMINOPHEN
     Indication: Abdominal pain
     Dosage: 1 G
     Dates: start: 202110
  6. ACETAMINOPHEN [Concomitant]
     Active Substance: ACETAMINOPHEN
     Dosage: 1 G
     Dates: start: 20211125, end: 20211129
  7. RANITIDINE [Concomitant]
     Active Substance: RANITIDINE
     Dosage: 50 MG
     Route: 042
     Dates: start: 20211105
  8. DEXCHLORPHENIRAMINE [Concomitant]
     Active Substance: DEXCHLORPHENIRAMINE
     Dosage: 5 MG
     Route: 042
     Dates: start: 20211105
  9. ONDANSETRON [Concomitant]
     Active Substance: ONDANSETRON
     Dosage: 8 MG
     Route: 042
     Dates: start: 20211105
  10. SCOPOLAMINE [Concomitant]
     Active Substance: SCOPOLAMINE
     Indication: Abdominal pain
     Dosage: UNK
     Dates: start: 20211202, end: 20211222
  11. UREA [Concomitant]
     Active Substance: UREA
     Dosage: UNK
     Dates: start: 20211112, end: 20211119

REACTIONS (1)
  - Enteritis [Recovered/Resolved]

NARRATIVE: CASE EVENT DATE: 20211124
